FAERS Safety Report 4974210-9 (Version None)
Quarter: 2006Q2

REPORT INFORMATION
  Report Type: 
  Country: None (occurrence: None)
  Receive Date: 20060417
  Receipt Date: 20051221
  Transmission Date: 20061013
  Serious: Yes (Hospitalization)
  Sender: FDA-Public Use
  Company Number: US-MERCK-0512USA03656

PATIENT
  Age: 51 Year
  Sex: Male
  Weight: 80 kg

DRUGS (6)
  1. VIOXX [Suspect]
     Indication: BACK PAIN
     Route: 048
     Dates: start: 20011106, end: 20031226
  2. VIOXX [Suspect]
     Indication: PAIN IN EXTREMITY
     Route: 048
     Dates: start: 20011106, end: 20031226
  3. PAXIL [Concomitant]
     Route: 065
  4. NEURONTIN [Concomitant]
     Route: 065
  5. HYDROCODONE BITARTRATE + ACETAMINOPHEN [Concomitant]
     Route: 065
  6. SOMA [Concomitant]
     Route: 065

REACTIONS (5)
  - ARTHROPATHY [None]
  - BLOOD TRIGLYCERIDES INCREASED [None]
  - CEREBROVASCULAR ACCIDENT [None]
  - HAEMORRHOIDS [None]
  - SPINAL CORD DISORDER [None]
